FAERS Safety Report 4689032-6 (Version None)
Quarter: 2005Q2

REPORT INFORMATION
  Report Type: 
  Country: None (occurrence: None)
  Receive Date: 20050613
  Receipt Date: 20050406
  Transmission Date: 20051028
  Serious: Yes (Hospitalization)
  Sender: FDA-Public Use
  Company Number: FR-MERCK-0504FRA00024

PATIENT
  Age: 63 Year
  Sex: Female

DRUGS (5)
  1. HYZAAR [Suspect]
     Indication: HYPERTENSION
     Route: 048
     Dates: end: 20040628
  2. HYZAAR [Suspect]
     Route: 048
     Dates: start: 20041009, end: 20050307
  3. ESTRADIOL [Concomitant]
     Indication: OSTEOPOROSIS
     Route: 061
  4. ESTRADIOL [Concomitant]
     Indication: POSTMENOPAUSE
     Route: 061
  5. TRAMADOL HYDROCHLORIDE [Concomitant]
     Indication: OSTEOARTHRITIS
     Route: 048

REACTIONS (3)
  - HEADACHE [None]
  - HOT FLUSH [None]
  - POLYMYOSITIS [None]
